FAERS Safety Report 8955423 (Version 1)
Quarter: 2012Q4

REPORT INFORMATION
  Report Type: 
  Country: US (occurrence: US)
  Receive Date: 20121207
  Receipt Date: 20121207
  Transmission Date: 20130627
  Serious: Yes (Hospitalization)
  Sender: FDA-Public Use
  Company Number: US-TEVA-374117USA

PATIENT
  Age: 47 Year
  Sex: Male

DRUGS (2)
  1. METHOTREXATE [Suspect]
     Indication: BURKITT^S LYMPHOMA
     Route: 065
  2. ESOMEPRAZOLE [Interacting]
     Indication: BURKITT^S LYMPHOMA
     Dosage: added to chemotherapy regimen
     Route: 065

REACTIONS (2)
  - Drug interaction [Recovered/Resolved]
  - Drug clearance decreased [Recovered/Resolved]
